FAERS Safety Report 9890307 (Version 1)
Quarter: 2014Q1

REPORT INFORMATION
  Report Type: Spontaneous
  Country: FR (occurrence: FR)
  Receive Date: 20140212
  Receipt Date: 20140212
  Transmission Date: 20141002
  Serious: Yes (Hospitalization)
  Sender: FDA-Public Use
  Company Number: FR-IPSEN BIOPHARMACEUTICALS, INC.-2014-0619

PATIENT
  Age: 65 Year
  Sex: Female
  Weight: 89 kg

DRUGS (12)
  1. SOMATULINE LP 30MG [Suspect]
     Indication: GASTROINTESTINAL HAEMORRHAGE
     Dosage: 30 MG
     Route: 030
     Dates: start: 20131216, end: 20131230
  2. SOMATULINE LP 30MG [Suspect]
     Indication: OFF LABEL USE
  3. SANDOSTATINE [Suspect]
     Indication: GASTROINTESTINAL HAEMORRHAGE
     Dosage: 100 MICROG/ML; 2 INJECTIONS DAILY
     Route: 058
     Dates: start: 20131212, end: 20131216
  4. SOMATOSTATIN [Suspect]
     Indication: GASTROINTESTINAL HAEMORRHAGE
     Dosage: 0.25 MG/H DURING 12H
     Route: 042
     Dates: start: 20140107, end: 20140116
  5. CORDADRONE [Concomitant]
     Indication: PRODUCT USED FOR UNKNOWN INDICATION
     Route: 065
  6. DIAMICRON 30 [Concomitant]
     Indication: PRODUCT USED FOR UNKNOWN INDICATION
     Dosage: NOT REPORTED
     Route: 065
  7. STAGID 700 [Concomitant]
     Indication: PRODUCT USED FOR UNKNOWN INDICATION
     Dosage: NOT REPORTED
     Route: 065
  8. COVERSYL [Concomitant]
     Indication: PRODUCT USED FOR UNKNOWN INDICATION
     Route: 065
  9. LANTUS [Concomitant]
     Indication: PRODUCT USED FOR UNKNOWN INDICATION
     Route: 065
  10. SERETIDE [Concomitant]
     Indication: PRODUCT USED FOR UNKNOWN INDICATION
     Dosage: NOT REPORTED
     Route: 065
  11. INEXIUM [Concomitant]
     Indication: PRODUCT USED FOR UNKNOWN INDICATION
     Dosage: NOT REPORTED
     Route: 065
  12. SINTRON [Concomitant]
     Indication: PRODUCT USED FOR UNKNOWN INDICATION
     Dosage: 2 TABLETS / EVENING
     Route: 065

REACTIONS (2)
  - Eosinophilia [Recovering/Resolving]
  - Interstitial lung disease [Not Recovered/Not Resolved]
